FAERS Safety Report 8133330-0 (Version None)
Quarter: 2012Q1

REPORT INFORMATION
  Report Type: 
  Country: None (occurrence: None)
  Receive Date: 20120213
  Receipt Date: 20120208
  Transmission Date: 20120608
  Serious: Yes (Other)
  Sender: FDA-Public Use
  Company Number: US-ROCHE-432375

PATIENT
  Sex: Male
  Weight: 73.5 kg

DRUGS (3)
  1. ACCUTANE [Suspect]
     Route: 048
  2. ACCUTANE [Suspect]
     Route: 048
     Dates: start: 19951222, end: 19960501
  3. ACCUTANE [Suspect]
     Indication: ACNE
     Route: 048

REACTIONS (8)
  - INFLAMMATORY BOWEL DISEASE [None]
  - CROHN'S DISEASE [None]
  - COLITIS [None]
  - IRRITABLE BOWEL SYNDROME [None]
  - ANAL FISSURE [None]
  - SKIN PAPILLOMA [None]
  - COLITIS ULCERATIVE [None]
  - ECZEMA [None]
